FAERS Safety Report 7577795-1 (Version None)
Quarter: 2011Q2

REPORT INFORMATION
  Report Type: 
  Country: None (occurrence: None)
  Receive Date: 20110628
  Receipt Date: 20110614
  Transmission Date: 20111010
  Serious: Yes (Hospitalization)
  Sender: FDA-Public Use
  Company Number: PHHY2011FR46036

PATIENT
  Sex: Female
  Weight: 80 kg

DRUGS (5)
  1. LERCANIDIPINE [Concomitant]
     Indication: HYPERTENSION
     Dosage: 20 MG, PER DAY
     Dates: start: 20100828
  2. RASILEZ HCT [Suspect]
     Dosage: 150 / 12.5 MG, ONCE PER DAY
     Dates: start: 20100828
  3. RASILEZ HCT [Suspect]
     Dosage: 300 / 12.5 MG DAILY
     Dates: start: 20100501, end: 20101101
  4. ESCITALOPRAM [Concomitant]
     Indication: DEPRESSION
     Dosage: 10 MG/DAY
  5. IRBESARTAN + HYDROCHLOROTHIAZIDE [Concomitant]
     Dosage: UNK

REACTIONS (10)
  - DYSPHAGIA [None]
  - OEDEMA PERIPHERAL [None]
  - ANAPHYLACTIC REACTION [None]
  - ANGIOEDEMA [None]
  - FACE OEDEMA [None]
  - PHARYNGEAL OEDEMA [None]
  - PRURITUS [None]
  - DYSPNOEA [None]
  - PERIORBITAL OEDEMA [None]
  - ODYNOPHAGIA [None]
